FAERS Safety Report 21728802 (Version 2)
Quarter: 2023Q4

REPORT INFORMATION
  Report Type: Report from Study
  Country: JP (occurrence: JP)
  Receive Date: 20221214
  Receipt Date: 20231108
  Transmission Date: 20240110
  Serious: Yes (Other)
  Sender: FDA-Public Use
  Company Number: JP-Merck Healthcare KGaA-9371462

PATIENT
  Age: 7 Decade
  Sex: Male

DRUGS (1)
  1. BAVENCIO [Suspect]
     Active Substance: AVELUMAB
     Indication: Transitional cell carcinoma
     Route: 041
     Dates: start: 20210112, end: 20221122

REACTIONS (2)
  - Interstitial lung disease [Recovering/Resolving]
  - KL-6 increased [Recovering/Resolving]

NARRATIVE: CASE EVENT DATE: 20221122
